FAERS Safety Report 5339760-4 (Version None)
Quarter: 2007Q2

REPORT INFORMATION
  Report Type: 
  Country: None (occurrence: None)
  Receive Date: 20070531
  Receipt Date: 20070522
  Transmission Date: 20071010
  Serious: Yes (Other)
  Sender: FDA-Public Use
  Company Number: PHEH2007US05419

PATIENT
  Age: 88 Year
  Sex: Female

DRUGS (1)
  1. ZELNORM [Suspect]
     Indication: CONSTIPATION
     Dosage: 6 MG, QD
     Route: 048
     Dates: start: 20070310, end: 20070412

REACTIONS (7)
  - ABDOMINAL PAIN [None]
  - BACK PAIN [None]
  - DIARRHOEA [None]
  - DIVERTICULITIS [None]
  - FAECES HARD [None]
  - FLATULENCE [None]
  - GASTROINTESTINAL HAEMORRHAGE [None]
